FAERS Safety Report 8416280-1 (Version None)
Quarter: 2012Q2

REPORT INFORMATION
  Report Type: 
  Country: None (occurrence: None)
  Receive Date: 20120606
  Receipt Date: 20120524
  Transmission Date: 20120825
  Serious: Yes (Hospitalization)
  Sender: FDA-Public Use
  Company Number: US-ELI_LILLY_AND_COMPANY-US201203001868

PATIENT
  Age: 71 Year
  Sex: Female
  Weight: 67.12 kg

DRUGS (4)
  1. CITALOPRAM HYDROBROMIDE [Concomitant]
  2. OXYGEN [Concomitant]
  3. CYMBALTA [Suspect]
     Indication: DEPRESSED MOOD
     Dosage: 30 MG, QD
     Route: 048
  4. CYMBALTA [Suspect]
     Dosage: 60 MG, QD

REACTIONS (8)
  - ARTERIOSCLEROSIS [None]
  - SYNCOPE [None]
  - BONE PAIN [None]
  - ASTHENIA [None]
  - LIBIDO INCREASED [None]
  - CEREBRAL SMALL VESSEL ISCHAEMIC DISEASE [None]
  - DEPRESSED MOOD [None]
  - PAIN [None]
